FAERS Safety Report 16875545 (Version 5)
Quarter: 2022Q4

REPORT INFORMATION
  Report Type: Spontaneous
  Country: US (occurrence: None)
  Receive Date: 20191002
  Receipt Date: 20221117
  Transmission Date: 20230113
  Serious: Yes (Hospitalization, Other)
  Sender: FDA-Public Use
  Company Number: 2019SF36611

PATIENT
  Age: 750 Month
  Sex: Male
  Weight: 77.1 kg

DRUGS (63)
  1. FARXIGA [Suspect]
     Active Substance: DAPAGLIFLOZIN PROPANEDIOL
     Indication: Type 2 diabetes mellitus
     Route: 048
     Dates: start: 20160125
  2. FARXIGA [Suspect]
     Active Substance: DAPAGLIFLOZIN PROPANEDIOL
     Indication: Weight decreased
     Route: 048
     Dates: start: 20160125
  3. FARXIGA [Suspect]
     Active Substance: DAPAGLIFLOZIN PROPANEDIOL
     Indication: Blood pressure decreased
     Route: 048
     Dates: start: 20160125
  4. FARXIGA [Suspect]
     Active Substance: DAPAGLIFLOZIN PROPANEDIOL
     Indication: Type 2 diabetes mellitus
     Dosage: 10 MG; 30 PILLS
     Route: 048
     Dates: start: 20180213
  5. FARXIGA [Suspect]
     Active Substance: DAPAGLIFLOZIN PROPANEDIOL
     Indication: Weight decreased
     Dosage: 10 MG; 30 PILLS
     Route: 048
     Dates: start: 20180213
  6. FARXIGA [Suspect]
     Active Substance: DAPAGLIFLOZIN PROPANEDIOL
     Indication: Blood pressure decreased
     Dosage: 10 MG; 30 PILLS
     Route: 048
     Dates: start: 20180213
  7. FARXIGA [Suspect]
     Active Substance: DAPAGLIFLOZIN PROPANEDIOL
     Indication: Type 2 diabetes mellitus
     Dosage: 10 MG, 30 PILLS
     Route: 048
     Dates: start: 20180320
  8. FARXIGA [Suspect]
     Active Substance: DAPAGLIFLOZIN PROPANEDIOL
     Indication: Weight decreased
     Dosage: 10 MG, 30 PILLS
     Route: 048
     Dates: start: 20180320
  9. FARXIGA [Suspect]
     Active Substance: DAPAGLIFLOZIN PROPANEDIOL
     Indication: Blood pressure decreased
     Dosage: 10 MG, 30 PILLS
     Route: 048
     Dates: start: 20180320
  10. FARXIGA [Suspect]
     Active Substance: DAPAGLIFLOZIN PROPANEDIOL
     Indication: Type 2 diabetes mellitus
     Dosage: 10 MG, 30 PILLS
     Route: 048
     Dates: start: 20180416
  11. FARXIGA [Suspect]
     Active Substance: DAPAGLIFLOZIN PROPANEDIOL
     Indication: Weight decreased
     Dosage: 10 MG, 30 PILLS
     Route: 048
     Dates: start: 20180416
  12. FARXIGA [Suspect]
     Active Substance: DAPAGLIFLOZIN PROPANEDIOL
     Indication: Blood pressure decreased
     Dosage: 10 MG, 30 PILLS
     Route: 048
     Dates: start: 20180416
  13. FARXIGA [Suspect]
     Active Substance: DAPAGLIFLOZIN PROPANEDIOL
     Indication: Type 2 diabetes mellitus
     Dosage: EVERY MORNING
     Route: 048
     Dates: start: 20171117
  14. FARXIGA [Suspect]
     Active Substance: DAPAGLIFLOZIN PROPANEDIOL
     Indication: Weight decreased
     Dosage: EVERY MORNING
     Route: 048
     Dates: start: 20171117
  15. FARXIGA [Suspect]
     Active Substance: DAPAGLIFLOZIN PROPANEDIOL
     Indication: Blood pressure decreased
     Dosage: EVERY MORNING
     Route: 048
     Dates: start: 20171117
  16. FARXIGA [Suspect]
     Active Substance: DAPAGLIFLOZIN PROPANEDIOL
     Indication: Type 2 diabetes mellitus
     Route: 048
     Dates: start: 20180920
  17. FARXIGA [Suspect]
     Active Substance: DAPAGLIFLOZIN PROPANEDIOL
     Indication: Weight decreased
     Route: 048
     Dates: start: 20180920
  18. FARXIGA [Suspect]
     Active Substance: DAPAGLIFLOZIN PROPANEDIOL
     Indication: Blood pressure decreased
     Route: 048
     Dates: start: 20180920
  19. FARXIGA [Suspect]
     Active Substance: DAPAGLIFLOZIN PROPANEDIOL
     Indication: Type 2 diabetes mellitus
     Route: 048
     Dates: end: 201805
  20. FARXIGA [Suspect]
     Active Substance: DAPAGLIFLOZIN PROPANEDIOL
     Indication: Weight decreased
     Route: 048
     Dates: end: 201805
  21. FARXIGA [Suspect]
     Active Substance: DAPAGLIFLOZIN PROPANEDIOL
     Indication: Blood pressure decreased
     Route: 048
     Dates: end: 201805
  22. FARXIGA [Suspect]
     Active Substance: DAPAGLIFLOZIN PROPANEDIOL
     Indication: Type 2 diabetes mellitus
     Route: 048
     Dates: start: 2016, end: 2018
  23. FARXIGA [Suspect]
     Active Substance: DAPAGLIFLOZIN PROPANEDIOL
     Indication: Weight decreased
     Route: 048
     Dates: start: 2016, end: 2018
  24. FARXIGA [Suspect]
     Active Substance: DAPAGLIFLOZIN PROPANEDIOL
     Indication: Blood pressure decreased
     Route: 048
     Dates: start: 2016, end: 2018
  25. VIBRAMYCIN [Concomitant]
     Active Substance: DOXYCYCLINE
  26. AMARYL [Concomitant]
     Active Substance: GLIMEPIRIDE
  27. LEVEMIR [Concomitant]
     Active Substance: INSULIN DETEMIR
     Indication: Diabetes mellitus
  28. PRINIVIL [Concomitant]
     Active Substance: LISINOPRIL
  29. PERCOCET [Concomitant]
     Active Substance: ACETAMINOPHEN\OXYCODONE HYDROCHLORIDE
  30. FLOMAX [Concomitant]
     Active Substance: TAMSULOSIN HYDROCHLORIDE
  31. METFORMIN [Concomitant]
     Active Substance: METFORMIN HYDROCHLORIDE
     Indication: Diabetes mellitus
  32. CLARITHROMYCIN [Concomitant]
     Active Substance: CLARITHROMYCIN
  33. AZITHROMYCIN [Concomitant]
     Active Substance: AZITHROMYCIN
  34. NOVOLOG [Concomitant]
     Active Substance: INSULIN ASPART
     Indication: Diabetes mellitus
  35. ONDANSETRON [Concomitant]
     Active Substance: ONDANSETRON
  36. OMEPRAZOLE [Concomitant]
     Active Substance: OMEPRAZOLE
  37. MUPIROCIN [Concomitant]
     Active Substance: MUPIROCIN
  38. DOXYCYCLINE HYCLATE [Concomitant]
     Active Substance: DOXYCYCLINE HYCLATE
  39. JANUVIA [Concomitant]
     Active Substance: SITAGLIPTIN PHOSPHATE
     Indication: Diabetes mellitus
  40. HYDROCODONE [Concomitant]
     Active Substance: HYDROCODONE
  41. PREDNISONE [Concomitant]
     Active Substance: PREDNISONE
  42. PROMETHAZINE [Concomitant]
     Active Substance: PROMETHAZINE HYDROCHLORIDE
  43. NORCO [Concomitant]
     Active Substance: ACETAMINOPHEN\HYDROCODONE BITARTRATE
  44. DILAUDID [Concomitant]
     Active Substance: HYDROMORPHONE HYDROCHLORIDE
  45. DEMEROL [Concomitant]
     Active Substance: MEPERIDINE HYDROCHLORIDE
  46. VERSED [Concomitant]
     Active Substance: MIDAZOLAM HYDROCHLORIDE
  47. PHENERGAN [Concomitant]
     Active Substance: PROMETHAZINE HYDROCHLORIDE
  48. NORMODYNE [Concomitant]
     Active Substance: LABETALOL HYDROCHLORIDE
  49. REGLAN [Concomitant]
     Active Substance: METOCLOPRAMIDE HYDROCHLORIDE
  50. SUBLIMAZE [Concomitant]
     Active Substance: FENTANYL CITRATE
  51. ZOFRAN [Concomitant]
     Active Substance: ONDANSETRON HYDROCHLORIDE
  52. TORADOL [Concomitant]
     Active Substance: KETOROLAC TROMETHAMINE
  53. PROPOFOL [Concomitant]
     Active Substance: PROPOFOL
  54. VANCOMYCIN [Concomitant]
     Active Substance: VANCOMYCIN
  55. DEXAMETHASONE [Concomitant]
     Active Substance: DEXAMETHASONE
  56. KETOROLAC TROMETHAMINE [Concomitant]
     Active Substance: KETOROLAC TROMETHAMINE
  57. ALBUTEROL [Concomitant]
     Active Substance: ALBUTEROL
  58. MEPERIDINE [Concomitant]
     Active Substance: MEPERIDINE
  59. METOCLOPRAMIDE [Concomitant]
     Active Substance: METOCLOPRAMIDE
  60. OXYCODONE [Concomitant]
     Active Substance: OXYCODONE
  61. LISINOPRIL [Concomitant]
     Active Substance: LISINOPRIL
     Indication: Hypertension
  62. GLIMEPIRIDE [Concomitant]
     Active Substance: GLIMEPIRIDE
     Indication: Diabetes mellitus
  63. DEVICE [Concomitant]
     Active Substance: DEVICE
     Indication: Diabetes mellitus

REACTIONS (9)
  - Fournier^s gangrene [Unknown]
  - Perineal abscess [Unknown]
  - Staphylococcal infection [Unknown]
  - Groin abscess [Unknown]
  - Scrotal abscess [Unknown]
  - Scrotal infection [Unknown]
  - Cellulitis of male external genital organ [Unknown]
  - Genital abscess [Unknown]
  - Anal abscess [Unknown]

NARRATIVE: CASE EVENT DATE: 20180501
